FAERS Safety Report 5480173-2 (Version None)
Quarter: 2007Q4

REPORT INFORMATION
  Report Type: 
  Country: None (occurrence: None)
  Receive Date: 20071003
  Receipt Date: 20070918
  Transmission Date: 20080405
  Serious: Yes (Other)
  Sender: FDA-Public Use
  Company Number: SPV1-2007-03027

PATIENT
  Age: 15 Year
  Sex: Male

DRUGS (2)
  1. ADDERALL 10 [Suspect]
     Dosage: 25 MG
     Dates: end: 20070101
  2. ADDERALL 10 [Suspect]
     Dosage: 25 MG
     Dates: start: 20070101

REACTIONS (1)
  - LOSS OF CONSCIOUSNESS [None]
